FAERS Safety Report 6843674-8 (Version None)
Quarter: 2010Q3

REPORT INFORMATION
  Report Type: 
  Country: None (occurrence: None)
  Receive Date: 20100715
  Receipt Date: 20100706
  Transmission Date: 20110219
  Serious: Yes (Hospitalization, Other)
  Sender: FDA-Public Use
  Company Number: US-JNJFOC-20100503647

PATIENT
  Sex: Male
  Weight: 105.24 kg

DRUGS (13)
  1. TOPAMAX [Suspect]
     Indication: MIGRAINE
     Route: 048
  2. TOPAMAX [Suspect]
     Route: 048
  3. TOPAMAX [Suspect]
     Route: 048
  4. TOPAMAX [Suspect]
     Route: 048
  5. TOPAMAX [Suspect]
     Route: 048
  6. TOPIRAMATE [Suspect]
     Indication: PRODUCT USED FOR UNKNOWN INDICATION
     Route: 065
  7. ZOCOR [Concomitant]
     Indication: BLOOD CHOLESTEROL INCREASED
     Route: 065
  8. LEVOXYL [Concomitant]
     Indication: THYROID DISORDER
     Route: 048
  9. ATENOLOL [Concomitant]
     Indication: HYPERTENSION
     Route: 048
  10. TOVIAZ [Concomitant]
     Indication: BLADDER DISORDER
     Route: 048
  11. HUMALOG [Concomitant]
     Indication: DIABETES MELLITUS
     Dosage: 1 IN AM
     Route: 058
  12. HUMALOG [Concomitant]
     Route: 058
  13. ASPIRIN [Concomitant]
     Route: 048

REACTIONS (6)
  - DISTURBANCE IN ATTENTION [None]
  - DYSPNOEA [None]
  - MENTAL IMPAIRMENT [None]
  - PNEUMONIA [None]
  - TIC [None]
  - TRIGEMINAL NEURALGIA [None]
